FAERS Safety Report 13605937 (Version 1)
Quarter: 2017Q2

REPORT INFORMATION
  Report Type: Spontaneous
  Country: US (occurrence: US)
  Receive Date: 20170602
  Receipt Date: 20170602
  Transmission Date: 20170830
  Serious: No
  Sender: FDA-Public Use
  Company Number: US-PFIZER INC-2017236143

PATIENT
  Age: 37 Year
  Sex: Male
  Weight: 86.18 kg

DRUGS (1)
  1. VIAGRA [Suspect]
     Active Substance: SILDENAFIL CITRATE
     Indication: ERECTILE DYSFUNCTION
     Dosage: 100 MG, SINGLE
     Route: 048
     Dates: start: 201705, end: 201705

REACTIONS (5)
  - Intentional product misuse [Unknown]
  - Drug ineffective [Unknown]
  - Product blister packaging issue [Unknown]
  - Headache [Recovered/Resolved]
  - Suspected counterfeit product [Unknown]

NARRATIVE: CASE EVENT DATE: 201705
